FAERS Safety Report 6078232-9 (Version None)
Quarter: 2009Q1

REPORT INFORMATION
  Report Type: 
  Country: None (occurrence: None)
  Receive Date: 20090213
  Receipt Date: 20090203
  Transmission Date: 20090719
  Serious: Yes (Death)
  Sender: FDA-Public Use
  Company Number: US-ELI_LILLY_AND_COMPANY-US200902001151

PATIENT
  Age: 53 Year
  Sex: Male

DRUGS (6)
  1. ZYPREXA [Suspect]
  2. CHLORPROMAZINE [Concomitant]
  3. AMITRIPTYLINE HCL [Concomitant]
  4. TRAMADOL HCL [Concomitant]
  5. HYDROCODONE BITARTRATE [Concomitant]
  6. ZOLPIDEM [Concomitant]

REACTIONS (1)
  - DRUG TOXICITY [None]
